FAERS Safety Report 16105620 (Version 1)
Quarter: 2019Q2

REPORT INFORMATION
  Report Type: Spontaneous
  Country: US (occurrence: US)
  Receive Date: 20190321
  Receipt Date: 20190321
  Transmission Date: 20190711
  Serious: Yes (Other)
  Sender: FDA-Public Use
  Company Number: None

PATIENT
  Age: 66 Year
  Sex: Female
  Weight: 70 kg

DRUGS (1)
  1. GILENYA [Suspect]
     Active Substance: FINGOLIMOD HYDROCHLORIDE
     Indication: MULTIPLE SCLEROSIS
     Dosage: ?          OTHER FREQUENCY:4 DAYS PER WEEK;?
     Route: 048
     Dates: start: 20111228, end: 20181228

REACTIONS (1)
  - Pyrexia [None]

NARRATIVE: CASE EVENT DATE: 20190315
